FAERS Safety Report 7521519-0 (Version None)
Quarter: 2011Q2

REPORT INFORMATION
  Report Type: 
  Country: None (occurrence: None)
  Receive Date: 20110603
  Receipt Date: 20110525
  Transmission Date: 20111010
  Serious: Yes (Other)
  Sender: FDA-Public Use
  Company Number: US-BAYER-200919789NA

PATIENT
  Age: 38 Year
  Sex: Female

DRUGS (15)
  1. CYMBALTA [Concomitant]
     Indication: DEPRESSION
  2. KLONOPIN [Concomitant]
     Indication: ANXIETY
  3. GABAPENTIN [Concomitant]
  4. ATIVAN [Concomitant]
     Indication: PANIC ATTACK
  5. KLONOPIN [Concomitant]
     Indication: PANIC ATTACK
  6. GABAPENTIN [Concomitant]
     Indication: PAIN IN EXTREMITY
  7. VICODIN [Concomitant]
     Indication: PAIN IN EXTREMITY
  8. BETASERON [Suspect]
     Indication: RELAPSING-REMITTING MULTIPLE SCLEROSIS
     Route: 058
     Dates: start: 20090430
  9. BETASERON [Suspect]
     Indication: PRIMARY PROGRESSIVE MULTIPLE SCLEROSIS
     Route: 058
     Dates: end: 20100101
  10. ATIVAN [Concomitant]
     Indication: ANXIETY
  11. BETASERON [Suspect]
     Dosage: 8 MIU, QOD
     Route: 058
     Dates: start: 20100831
  12. BETASERON [Suspect]
     Dosage: UNK
     Dates: start: 20090402, end: 20091209
  13. ATIVAN [Concomitant]
     Indication: CRYING
  14. KLONOPIN [Concomitant]
     Indication: CRYING
  15. LEXAPRO [Concomitant]
     Indication: ANXIETY DISORDER

REACTIONS (42)
  - HYPOAESTHESIA [None]
  - MEMORY IMPAIRMENT [None]
  - VISION BLURRED [None]
  - HEPATIC ENZYME INCREASED [None]
  - PRIMARY PROGRESSIVE MULTIPLE SCLEROSIS [None]
  - ANXIETY [None]
  - INSOMNIA [None]
  - COORDINATION ABNORMAL [None]
  - INJECTION SITE PRURITUS [None]
  - MALAISE [None]
  - MENTAL DISORDER [None]
  - DIZZINESS [None]
  - FATIGUE [None]
  - BACK DISORDER [None]
  - BALANCE DISORDER [None]
  - INJECTION SITE VESICLES [None]
  - DEPRESSION [None]
  - TEARFULNESS [None]
  - MOBILITY DECREASED [None]
  - DYSPNOEA [None]
  - HALLUCINATION, AUDITORY [None]
  - THINKING ABNORMAL [None]
  - HEADACHE [None]
  - EAR INFECTION [None]
  - FALL [None]
  - ANXIETY DISORDER [None]
  - INJECTION SITE HAEMATOMA [None]
  - PAIN IN EXTREMITY [None]
  - MUSCULOSKELETAL PAIN [None]
  - NECK PAIN [None]
  - SPONDYLITIS [None]
  - CARPAL TUNNEL SYNDROME [None]
  - PANIC REACTION [None]
  - VERTIGO [None]
  - GAIT DISTURBANCE [None]
  - DYSARTHRIA [None]
  - MULTIPLE SCLEROSIS [None]
  - BLOOD POTASSIUM DECREASED [None]
  - EMOTIONAL DISORDER [None]
  - MUSCULAR WEAKNESS [None]
  - INJECTION SITE INDURATION [None]
  - CRYING [None]
